FAERS Safety Report 7385171-X (Version None)
Quarter: 2011Q1

REPORT INFORMATION
  Report Type: 
  Country: None (occurrence: None)
  Receive Date: 20110330
  Receipt Date: 20110309
  Transmission Date: 20110831
  Serious: No
  Sender: FDA-Public Use
  Company Number: US-B.I. PHARMACEUTICALS,INC./RIDGEFIELD-2011-BP-02583BP

PATIENT
  Sex: Female

DRUGS (1)
  1. SPIRIVA [Suspect]
     Route: 055

REACTIONS (8)
  - DYSPHONIA [None]
  - DRUG INEFFECTIVE [None]
  - MUSCLE SPASMS [None]
  - DYSPHAGIA [None]
  - ERYTHEMA [None]
  - RASH [None]
  - DYSPNOEA [None]
  - OEDEMA PERIPHERAL [None]
